FAERS Safety Report 6336671-2 (Version None)
Quarter: 2009Q3

REPORT INFORMATION
  Report Type: 
  Country: None (occurrence: None)
  Receive Date: 20090901
  Receipt Date: 20090820
  Transmission Date: 20100115
  Serious: Yes (Hospitalization)
  Sender: FDA-Public Use
  Company Number: GB-PFIZER INC-2009242713

PATIENT
  Age: 38 Year

DRUGS (2)
  1. SUTENT [Suspect]
     Dosage: 50 MG, 1X/DAY
     Route: 048
     Dates: start: 20090702
  2. LEVOTHYROXINE SODIUM [Concomitant]
     Route: 048

REACTIONS (5)
  - ANAL ABSCESS [None]
  - CHILLS [None]
  - INFLUENZA [None]
  - PYREXIA [None]
  - URTICARIA [None]
